FAERS Safety Report 5717705-2 (Version None)
Quarter: 2008Q2

REPORT INFORMATION
  Report Type: 
  Country: None (occurrence: None)
  Receive Date: 20080425
  Receipt Date: 20080416
  Transmission Date: 20081010
  Serious: Yes (Hospitalization, Other)
  Sender: FDA-Public Use
  Company Number: AU-NOVOPROD-274157

PATIENT
  Age: 69 Year
  Sex: Male
  Weight: 89 kg

DRUGS (2)
  1. NOVOSEVEN [Suspect]
     Indication: HAEMORRHAGE
     Dosage: 8.01 MG, SINGLE
     Route: 042
     Dates: start: 20070522, end: 20070522
  2. HEPARIN [Concomitant]
     Dates: start: 20070522

REACTIONS (2)
  - ATRIAL FIBRILLATION [None]
  - PERICARDIAL EFFUSION [None]
